FAERS Safety Report 5622463-6 (Version None)
Quarter: 2008Q1

REPORT INFORMATION
  Report Type: 
  Country: None (occurrence: None)
  Receive Date: 20080211
  Receipt Date: 20071119
  Transmission Date: 20080703
  Serious: Yes (Life-Threatening, Hospitalization)
  Sender: FDA-Public Use
  Company Number: ZA-GILEAD-2007-0014393

PATIENT
  Sex: Female
  Weight: 62 kg

DRUGS (4)
  1. TRUVADA [Suspect]
     Indication: HIV INFECTION
     Dosage: 1 DOSE, 1 IN 12 HOUR
     Route: 048
     Dates: start: 20060612, end: 20060803
  2. KALETRA [Suspect]
     Indication: HIV INFECTION
     Route: 048
     Dates: start: 20060612, end: 20060803
  3. BACTRIM [Concomitant]
     Indication: ANTIFUNGAL PROPHYLAXIS
     Route: 048
     Dates: start: 20060503
  4. PETOGEN [Concomitant]
     Indication: CONTRACEPTION
     Route: 030

REACTIONS (1)
  - TRANSAMINASES INCREASED [None]
